FAERS Safety Report 13211040 (Version 4)
Quarter: 2017Q2

REPORT INFORMATION
  Report Type: Report from Study
  Country: US (occurrence: US)
  Receive Date: 20170210
  Receipt Date: 20170616
  Transmission Date: 20170830
  Serious: Yes (Hospitalization, Other)
  Sender: FDA-Public Use
  Company Number: US-GILEAD-2017-0257261

PATIENT
  Age: 81 Day
  Sex: Female

DRUGS (16)
  1. HYDROCHLOROTHIAZIDE. [Concomitant]
     Active Substance: HYDROCHLOROTHIAZIDE
  2. VYTORIN [Concomitant]
     Active Substance: EZETIMIBE\SIMVASTATIN
  3. LASIX [Concomitant]
     Active Substance: FUROSEMIDE
  4. LOTEMAX [Concomitant]
     Active Substance: LOTEPREDNOL ETABONATE
  5. COUMADIN [Concomitant]
     Active Substance: WARFARIN SODIUM
  6. SYNTHROID [Concomitant]
     Active Substance: LEVOTHYROXINE SODIUM
  7. NASONEX [Concomitant]
     Active Substance: MOMETASONE FUROATE
  8. AMBRISENTAN [Suspect]
     Active Substance: AMBRISENTAN
     Indication: PULMONARY HYPERTENSION
     Dosage: 10 MG, QD
     Route: 065
     Dates: start: 20100120
  9. CLARITIN [Concomitant]
     Active Substance: LORATADINE
  10. IRON [Concomitant]
     Active Substance: IRON
  11. METOPROLOL. [Concomitant]
     Active Substance: METOPROLOL
  12. PRILOSEC [Concomitant]
     Active Substance: OMEPRAZOLE MAGNESIUM
  13. MULTIVITAMIN                       /00097801/ [Concomitant]
     Active Substance: VITAMINS
  14. VASOTEC [Concomitant]
     Active Substance: ENALAPRIL MALEATE
  15. ASPIRIN                            /00002701/ [Concomitant]
     Active Substance: ASPIRIN
  16. OMEGA 3                            /01333901/ [Concomitant]
     Active Substance: FISH OIL\TOCOPHEROL

REACTIONS (3)
  - Coronary artery disease [Unknown]
  - Pleural effusion [Recovered/Resolved]
  - Arterial disorder [Unknown]

NARRATIVE: CASE EVENT DATE: 20170531
